FAERS Safety Report 6428807-X (Version None)
Quarter: 2009Q4

REPORT INFORMATION
  Report Type: 
  Country: None (occurrence: None)
  Receive Date: 20091105
  Receipt Date: 20091028
  Transmission Date: 20100525
  Serious: Yes (Other)
  Sender: FDA-Public Use
  Company Number: US-JNJFOC-20091009215

PATIENT
  Age: 11 Year
  Sex: Male
  Weight: 49.44 kg

DRUGS (2)
  1. CHILDREN'S TYLENOL PLUS FLU BUBBLEGUM [Suspect]
     Indication: PYREXIA
     Route: 048
  2. TAMIFLU [Concomitant]
     Indication: NASOPHARYNGITIS

REACTIONS (1)
  - HALLUCINATION, VISUAL [None]
